FAERS Safety Report 15100586 (Version 1)
Quarter: 2018Q3

REPORT INFORMATION
  Report Type: Report from Study
  Country: CA (occurrence: CA)
  Receive Date: 20180703
  Receipt Date: 20180703
  Transmission Date: 20181010
  Serious: Yes (Other)
  Sender: FDA-Public Use
  Company Number: CA-BRISTOL-MYERS SQUIBB COMPANY-BMS-2018-037375

PATIENT
  Age: 63 Year
  Sex: Female

DRUGS (3)
  1. YERVOY [Suspect]
     Active Substance: IPILIMUMAB
     Indication: MALIGNANT MELANOMA
     Dosage: 3 MG/KG, Q3WK, 150 MG
     Route: 042
     Dates: start: 20180410
  2. VITAMINS                           /00067501/ [Concomitant]
     Active Substance: VITAMINS
     Indication: PRODUCT USED FOR UNKNOWN INDICATION
     Route: 065
  3. NIVOLUMAB [Suspect]
     Active Substance: NIVOLUMAB
     Indication: MALIGNANT MELANOMA
     Dosage: 3 MG/KG, Q3WK, 60 MG
     Route: 042
     Dates: start: 20180410

REACTIONS (13)
  - Rash [Not Recovered/Not Resolved]
  - Fatigue [Recovering/Resolving]
  - Erythema [Unknown]
  - Decreased appetite [Unknown]
  - Pruritus [Recovering/Resolving]
  - Pain in extremity [Recovering/Resolving]
  - Diarrhoea [Recovering/Resolving]
  - Night sweats [Recovering/Resolving]
  - Weight decreased [Recovering/Resolving]
  - Headache [Unknown]
  - Pyrexia [Recovering/Resolving]
  - Asthenia [Recovering/Resolving]
  - Weight fluctuation [Unknown]

NARRATIVE: CASE EVENT DATE: 20180418
